FAERS Safety Report 11953089 (Version 1)
Quarter: 2016Q1

REPORT INFORMATION
  Report Type: Report from Study
  Country: JP (occurrence: JP)
  Receive Date: 20160126
  Receipt Date: 20160126
  Transmission Date: 20160526
  Serious: Yes (Hospitalization)
  Sender: FDA-Public Use
  Company Number: JP-EISAI MEDICAL RESEARCH-E7080-01497-CLI-JP

PATIENT
  Age: 75 Year
  Sex: Female
  Weight: 61 kg

DRUGS (11)
  1. BLOPRESS [Concomitant]
     Active Substance: CANDESARTAN CILEXETIL
  2. AMLODIN [Concomitant]
     Active Substance: AMLODIPINE BESYLATE
  3. MYSER [Concomitant]
     Active Substance: DIFLUPREDNATE
  4. LENVATINIB [Suspect]
     Active Substance: LENVATINIB
     Route: 048
     Dates: start: 20130516, end: 20130605
  5. LENVATINIB [Suspect]
     Active Substance: LENVATINIB
     Indication: THYROID CANCER
     Route: 048
     Dates: start: 20130418, end: 20130501
  6. LENVATINIB [Suspect]
     Active Substance: LENVATINIB
     Route: 048
     Dates: start: 20130606, end: 20140511
  7. HIRUDOID [Concomitant]
     Active Substance: GLYCOSAMINOGLYCANS
  8. LENVATINIB [Suspect]
     Active Substance: LENVATINIB
     Route: 048
     Dates: start: 20130502, end: 20130515
  9. LEVOTHYROXINE. [Concomitant]
     Active Substance: LEVOTHYROXINE
  10. THYRADIN S [Concomitant]
     Active Substance: LEVOTHYROXINE SODIUM
  11. DRENISON [Concomitant]
     Active Substance: FLURANDRENOLIDE

REACTIONS (1)
  - Diverticulitis [Recovered/Resolved]

NARRATIVE: CASE EVENT DATE: 20140512
